FAERS Safety Report 4539093-X (Version None)
Quarter: 2004Q4

REPORT INFORMATION
  Report Type: 
  Country: None (occurrence: None)
  Receive Date: 20041222
  Receipt Date: 20041207
  Transmission Date: 20050328
  Serious: Yes (Hospitalization, Other)
  Sender: FDA-Public Use
  Company Number: USA-2004-0017980

PATIENT
  Age: 52 Year
  Sex: Female
  Weight: 56.7 kg

DRUGS (15)
  1. MS CONTIN [Suspect]
     Indication: PAIN
     Dosage: 200 MG, BID
  2. MORPHINE SULFATE [Concomitant]
  3. ROXICODONE [Concomitant]
  4. DILAUDID [Concomitant]
  5. SYNTHROID (LLEVOTHYROXINE SODIUM) [Concomitant]
  6. VITAMIN B12 [Concomitant]
  7. ESTRACE [Concomitant]
  8. SOMA [Concomitant]
  9. ACTONEL [Concomitant]
  10. PHENERGAN [Concomitant]
  11. VALIUM [Concomitant]
  12. MIRALAX [Concomitant]
  13. PREVACID [Concomitant]
  14. MIACALCIN [Concomitant]
  15. LIDOCAINE [Concomitant]

REACTIONS (31)
  - ARTHRALGIA [None]
  - BACK PAIN [None]
  - BLOOD PRESSURE DIASTOLIC DECREASED [None]
  - CONTUSION [None]
  - DEHYDRATION [None]
  - DRUG ABUSER [None]
  - DRUG DEPENDENCE [None]
  - DRUG TOLERANCE [None]
  - EAR PAIN [None]
  - FACIAL PAIN [None]
  - HEAD INJURY [None]
  - HEADACHE [None]
  - HYPOAESTHESIA [None]
  - INADEQUATE ANALGESIA [None]
  - INJECTION SITE REACTION [None]
  - MUSCLE SPASMS [None]
  - NAUSEA [None]
  - NECK PAIN [None]
  - OTITIS MEDIA [None]
  - PAIN [None]
  - PAIN EXACERBATED [None]
  - PAIN IN EXTREMITY [None]
  - PARAESTHESIA [None]
  - PHARYNGITIS [None]
  - PHOTOPHOBIA [None]
  - POST-TRAUMATIC HEADACHE [None]
  - ROAD TRAFFIC ACCIDENT [None]
  - TINNITUS [None]
  - TOOTHACHE [None]
  - UPPER RESPIRATORY TRACT INFECTION [None]
  - VOMITING [None]
